FAERS Safety Report 9056481 (Version 2)
Quarter: 2013Q1

REPORT INFORMATION
  Report Type: Spontaneous
  Country: BR (occurrence: BR)
  Receive Date: 20130204
  Receipt Date: 20130228
  Transmission Date: 20140127
  Serious: Yes (Hospitalization, Other)
  Sender: FDA-Public Use
  Company Number: PHHY2013BR008139

PATIENT
  Sex: Female

DRUGS (3)
  1. DIOVAN HCT [Suspect]
     Indication: HYPERTENSION
     Dosage: 1 DF (160/12.5 MG) A DAY
     Route: 048
  2. RIVOTRIL [Suspect]
     Indication: SLEEP DISORDER
     Dosage: 1 DF, (HALF A TABLET IN THE MORNING AND HALF A TABLET AT NIGHT)
  3. RIVOTRIL [Suspect]
     Dosage: 0.5 DF, (HALF TABLET IN THE MORNING ONLY)

REACTIONS (5)
  - Blood pressure inadequately controlled [Recovered/Resolved]
  - Angina pectoris [Recovered/Resolved]
  - Angina unstable [Recovered/Resolved]
  - Rheumatic disorder [Recovered/Resolved]
  - Blood cholesterol abnormal [Recovered/Resolved]
